FAERS Safety Report 16394088 (Version 5)
Quarter: 2019Q4

REPORT INFORMATION
  Report Type: Report from Study
  Country: JP (occurrence: JP)
  Receive Date: 20190605
  Receipt Date: 20191004
  Transmission Date: 20200122
  Serious: Yes (Life-Threatening, Hospitalization, Other)
  Sender: FDA-Public Use
  Company Number: JP-PFIZER INC-2019230711

PATIENT
  Age: 57 Year
  Sex: Female
  Weight: 63 kg

DRUGS (10)
  1. XELJANZ [Suspect]
     Active Substance: TOFACITINIB CITRATE
     Dosage: 5 MG, 1X/DAY
     Route: 048
     Dates: start: 20181207
  2. METOLATE [Suspect]
     Active Substance: METHOTREXATE
     Dosage: 14 MG, 1X/DAY
     Route: 048
     Dates: start: 20171201, end: 20180705
  3. XELJANZ [Suspect]
     Active Substance: TOFACITINIB CITRATE
     Dosage: 5 MG, EVERY 48H
     Route: 048
     Dates: end: 20190523
  4. METOLATE [Suspect]
     Active Substance: METHOTREXATE
     Dosage: 12 MG, 1X/DAY
     Route: 048
     Dates: start: 20171020, end: 20171130
  5. FOLIC ACID. [Concomitant]
     Active Substance: FOLIC ACID
     Dosage: UNK
  6. METOLATE [Suspect]
     Active Substance: METHOTREXATE
     Indication: RHEUMATOID ARTHRITIS
     Dosage: 6 MG, 1X/DAY
     Route: 048
     Dates: start: 20170914, end: 20170928
  7. METOLATE [Suspect]
     Active Substance: METHOTREXATE
     Dosage: 10 MG, 1X/DAY
     Route: 048
     Dates: start: 20170929, end: 20171019
  8. XELJANZ [Suspect]
     Active Substance: TOFACITINIB CITRATE
     Indication: RHEUMATOID ARTHRITIS
     Dosage: 5 MG, 2X/DAY
     Route: 048
     Dates: start: 20171210, end: 20181206
  9. METOLATE [Suspect]
     Active Substance: METHOTREXATE
     Dosage: 10 MG, 1X/DAY
     Route: 048
     Dates: start: 20180706, end: 20190327
  10. METOLATE [Suspect]
     Active Substance: METHOTREXATE
     Dosage: 8 MG, 1X/DAY
     Route: 048
     Dates: start: 20190328

REACTIONS (3)
  - Uterine cancer [Not Recovered/Not Resolved]
  - Endometrial cancer [Recovered/Resolved]
  - Aspartate aminotransferase increased [Unknown]

NARRATIVE: CASE EVENT DATE: 20190508
